FAERS Safety Report 4784422-5 (Version None)
Quarter: 2005Q3

REPORT INFORMATION
  Report Type: 
  Country: None (occurrence: None)
  Receive Date: 20050928
  Receipt Date: 20050912
  Transmission Date: 20060218
  Serious: Yes (Other)
  Sender: FDA-Public Use
  Company Number: US_0504116370

PATIENT
  Age: 49 Year
  Sex: Male

DRUGS (21)
  1. ZYPREXA [Suspect]
     Indication: POST-TRAUMATIC STRESS DISORDER
     Dosage: 10 MG AT BEDTIME
     Dates: start: 19980122, end: 20040919
  2. ATENOLOL [Concomitant]
  3. NAPROXEN [Concomitant]
  4. RANITIDINE [Concomitant]
  5. SIMVASTATIN [Concomitant]
  6. TAMSULOSIN [Concomitant]
  7. FLUOXETINE [Concomitant]
  8. QUETIAPINE FUMARATE [Concomitant]
  9. TRAZODONE HCL [Concomitant]
  10. ALBUTEROL [Concomitant]
  11. ASPIRIN [Concomitant]
  12. LISINOPRIL [Concomitant]
  13. SILDENAFIL CITRATE [Concomitant]
  14. BECLOMETHASONE DIPROPIONATE [Concomitant]
  15. NYSTATIN [Concomitant]
  16. BUPROPION [Concomitant]
  17. NICOTINE [Concomitant]
  18. CLOTRIMAZOLE [Concomitant]
  19. GEMFIBROZIL [Concomitant]
  20. NAVANE [Concomitant]
  21. ARTANE (TRIHEXPHENIDYL HYDROCHLORIDE) [Concomitant]

REACTIONS (8)
  - CORONARY ARTERY DISEASE [None]
  - DIABETES MELLITUS NON-INSULIN-DEPENDENT [None]
  - DYSLIPIDAEMIA [None]
  - HYPERTENSION [None]
  - MYOCARDIAL INFARCTION [None]
  - OBESITY [None]
  - PAIN IN EXTREMITY [None]
  - TREATMENT NONCOMPLIANCE [None]
